FAERS Safety Report 23197677 (Version 3)
Quarter: 2024Q1

REPORT INFORMATION
  Report Type: Report from Study
  Country: US (occurrence: US)
  Receive Date: 20231117
  Receipt Date: 20240304
  Transmission Date: 20240409
  Serious: Yes (Hospitalization, Other)
  Sender: FDA-Public Use
  Company Number: US-ALXN-A202312695AA

PATIENT
  Age: 68 Year
  Sex: Female

DRUGS (1)
  1. ULTOMIRIS [Suspect]
     Active Substance: RAVULIZUMAB-CWVZ
     Indication: Paroxysmal nocturnal haemoglobinuria
     Dosage: UNK
     Route: 042

REACTIONS (12)
  - Sepsis [Unknown]
  - Septic shock [Unknown]
  - Infection [Not Recovered/Not Resolved]
  - Arthritis bacterial [Recovering/Resolving]
  - Asthenia [Unknown]
  - Pain in extremity [Unknown]
  - Gait disturbance [Not Recovered/Not Resolved]
  - Fatigue [Unknown]
  - Muscular weakness [Unknown]
  - Anxiety [Unknown]
  - Vision blurred [Unknown]
  - Insomnia [Unknown]

NARRATIVE: CASE EVENT DATE: 20211201
